FAERS Safety Report 12811155 (Version 2)
Quarter: 2016Q4

REPORT INFORMATION
  Report Type: Spontaneous
  Country: US (occurrence: US)
  Receive Date: 20161005
  Receipt Date: 20161011
  Transmission Date: 20170207
  Serious: Yes (Other)
  Sender: FDA-Public Use
  Company Number: US-PFIZER INC-2016463943

PATIENT
  Sex: Female

DRUGS (1)
  1. METHOTREXATE SODIUM. [Suspect]
     Active Substance: METHOTREXATE SODIUM
     Dosage: UNK
     Route: 065

REACTIONS (9)
  - Scar [Unknown]
  - Nervousness [Unknown]
  - Furuncle [Unknown]
  - Fatigue [Unknown]
  - Malaise [Unknown]
  - Cyst [Not Recovered/Not Resolved]
  - Gastric haemorrhage [Unknown]
  - Cellulitis [Unknown]
  - Pain [Unknown]
